FAERS Safety Report 25600335 (Version 1)
Quarter: 2025Q3

REPORT INFORMATION
  Report Type: Spontaneous
  Country: US (occurrence: US)
  Receive Date: 20250724
  Receipt Date: 20250724
  Transmission Date: 20251020
  Serious: Yes (Life-Threatening, Hospitalization)
  Sender: MACLEODS
  Company Number: US-MLMSERVICE-20250710-PI573319-00201-1

PATIENT

DRUGS (1)
  1. LIDOCAINE [Suspect]
     Active Substance: LIDOCAINE
     Indication: Local anaesthesia
     Route: 058

REACTIONS (3)
  - Status epilepticus [Recovered/Resolved]
  - Shock [Recovered/Resolved]
  - Local anaesthetic systemic toxicity [Recovered/Resolved]
